FAERS Safety Report 26179409 (Version 1)
Quarter: 2025Q4

REPORT INFORMATION
  Report Type: Spontaneous
  Country: EU (occurrence: EU)
  Receive Date: 20251219
  Receipt Date: 20251219
  Transmission Date: 20260117
  Serious: Yes (Hospitalization)
  Sender: CHEPLAPHARM
  Company Number: None

PATIENT
  Age: 35 Year
  Sex: Female

DRUGS (8)
  1. OLANZAPINE [Suspect]
     Active Substance: OLANZAPINE
     Indication: Intentional overdose
     Route: 048
     Dates: start: 20251130, end: 20251130
  2. OLANZAPINE [Suspect]
     Active Substance: OLANZAPINE
     Indication: Drug abuse
     Route: 048
     Dates: start: 20251130, end: 20251130
  3. FLUOXETINE [Suspect]
     Active Substance: FLUOXETINE HYDROCHLORIDE
     Indication: Drug abuse
     Route: 048
     Dates: start: 20251130, end: 20251130
  4. FLUOXETINE [Suspect]
     Active Substance: FLUOXETINE HYDROCHLORIDE
     Indication: Intentional overdose
     Route: 048
     Dates: start: 20251130, end: 20251130
  5. ALPRAZOLAM [Suspect]
     Active Substance: ALPRAZOLAM
     Indication: Drug abuse
     Route: 048
     Dates: start: 20251130, end: 20251130
  6. ALPRAZOLAM [Suspect]
     Active Substance: ALPRAZOLAM
     Indication: Intentional overdose
     Route: 048
     Dates: start: 20251130, end: 20251130
  7. LORAZEPAM [Suspect]
     Active Substance: LORAZEPAM
     Indication: Intentional overdose
     Route: 048
     Dates: start: 20251130, end: 20251130
  8. LORAZEPAM [Suspect]
     Active Substance: LORAZEPAM
     Indication: Drug abuse
     Route: 048
     Dates: start: 20251130, end: 20251130

REACTIONS (4)
  - Depressed level of consciousness [Not Recovered/Not Resolved]
  - Intentional overdose [Not Recovered/Not Resolved]
  - Drug abuse [Not Recovered/Not Resolved]
  - Coma [Not Recovered/Not Resolved]

NARRATIVE: CASE EVENT DATE: 20251130
